FAERS Safety Report 25460151 (Version 3)
Quarter: 2025Q3

REPORT INFORMATION
  Report Type: Spontaneous
  Country: EU (occurrence: EU)
  Receive Date: 20250620
  Receipt Date: 20250709
  Transmission Date: 20251021
  Serious: Yes (Hospitalization, Other)
  Sender: ROVIPHARM SAS
  Company Number: EU-JNJFOC-20250536421

PATIENT
  Age: 16 Year
  Sex: Male

DRUGS (5)
  1. RISPERIDONE [Suspect]
     Active Substance: RISPERIDONE
     Indication: Autism spectrum disorder
  2. RISPERIDONE [Suspect]
     Active Substance: RISPERIDONE
     Indication: Aggression
  3. CONCERTA [Suspect]
     Active Substance: METHYLPHENIDATE HYDROCHLORIDE
     Indication: Autism spectrum disorder
  4. OLANZAPINE [Suspect]
     Active Substance: OLANZAPINE
     Indication: Mania
  5. METHYLPHENIDATE [Suspect]
     Active Substance: METHYLPHENIDATE
     Indication: Aggression

REACTIONS (7)
  - Irritability [Recovered/Resolved]
  - Insomnia [Recovered/Resolved]
  - Sexually inappropriate behaviour [Recovered/Resolved]
  - Mania [Recovered/Resolved]
  - Extrapyramidal disorder [Recovered/Resolved]
  - Soliloquy [Recovered/Resolved]
  - Autism spectrum disorder [Unknown]
